FAERS Safety Report 14745043 (Version 3)
Quarter: 2018Q2

REPORT INFORMATION
  Report Type: Spontaneous
  Country: US (occurrence: US)
  Receive Date: 20180411
  Receipt Date: 20180523
  Transmission Date: 20180711
  Serious: No
  Sender: FDA-Public Use
  Company Number: US-PFIZER INC-2018147439

PATIENT
  Age: 60 Year
  Sex: Female
  Weight: 81.65 kg

DRUGS (7)
  1. LYRICA [Suspect]
     Active Substance: PREGABALIN
     Dosage: 75 MG, UNK [75 AT NIGHT AND 75 THE NEXT MORNING]
  2. FAMOTIDINE. [Concomitant]
     Active Substance: FAMOTIDINE
     Indication: GASTROOESOPHAGEAL REFLUX DISEASE
     Dosage: 20 MG, UNK (ONCE)
  3. LYRICA [Suspect]
     Active Substance: PREGABALIN
     Indication: FIBROMYALGIA
     Dosage: 50 MG, (SUPPOSED TO TAKE TWO AT THE TIME TO GET 100)
     Route: 048
  4. LYRICA [Suspect]
     Active Substance: PREGABALIN
     Dosage: 75 MG, UNK
  5. LEVOTHYROXINE. [Concomitant]
     Active Substance: LEVOTHYROXINE
     Indication: THYROID DISORDER
     Dosage: UNK (75) (FREQUENCY: CONSUMER STATED, ^ONE^)
  6. LYRICA [Suspect]
     Active Substance: PREGABALIN
     Dosage: 100 MG, UNK (HAVE BEEN AT 100MG THE LONGEST) (NOW WE ARE AT THE 100 JUST AT NIGHT)
  7. LYRICA [Suspect]
     Active Substance: PREGABALIN
     Dosage: UNK (WE TRIED 150 )

REACTIONS (13)
  - Sleep disorder [Unknown]
  - Syncope [Unknown]
  - Arthralgia [Unknown]
  - Pain [Not Recovered/Not Resolved]
  - Eye swelling [Unknown]
  - Memory impairment [Not Recovered/Not Resolved]
  - Bone pain [Unknown]
  - Headache [Not Recovered/Not Resolved]
  - Speech disorder [Not Recovered/Not Resolved]
  - Amnesia [Not Recovered/Not Resolved]
  - Breast pain [Not Recovered/Not Resolved]
  - Intentional product use issue [Unknown]
  - Depression [Unknown]
